FAERS Safety Report 6137067-9 (Version None)
Quarter: 2009Q1

REPORT INFORMATION
  Report Type: 
  Country: None (occurrence: None)
  Receive Date: 20090330
  Receipt Date: 20090316
  Transmission Date: 20090719
  Serious: Yes (Death, Other)
  Sender: FDA-Public Use
  Company Number: GB-ROCHE-622084

PATIENT
  Sex: Female

DRUGS (3)
  1. XELODA [Suspect]
     Indication: GASTRIC CANCER
     Route: 065
     Dates: end: 20081001
  2. OXALIPLATIN [Concomitant]
     Indication: GASTRIC CANCER
  3. EPIRUBICIN [Concomitant]
     Indication: GASTRIC CANCER

REACTIONS (6)
  - DEATH [None]
  - DIARRHOEA [None]
  - NAUSEA [None]
  - RENAL FAILURE [None]
  - SEPSIS [None]
  - VOMITING [None]
